FAERS Safety Report 20622334 (Version 2)
Quarter: 2022Q2

REPORT INFORMATION
  Report Type: Report from Study
  Country: DE (occurrence: DE)
  Receive Date: 20220322
  Receipt Date: 20220509
  Transmission Date: 20220721
  Serious: Yes (Hospitalization, Other)
  Sender: FDA-Public Use
  Company Number: DE-TAKEDA-2022TUS018348

PATIENT
  Age: 10 Year
  Sex: Female

DRUGS (42)
  1. TEDUGLUTIDE [Suspect]
     Active Substance: TEDUGLUTIDE
     Indication: Short-bowel syndrome
     Dosage: 0.8 MILLIGRAM, QD
     Route: 042
     Dates: start: 20171001, end: 20200825
  2. TEDUGLUTIDE [Suspect]
     Active Substance: TEDUGLUTIDE
     Indication: Short-bowel syndrome
     Dosage: 0.8 MILLIGRAM, QD
     Route: 042
     Dates: start: 20171001, end: 20200825
  3. TEDUGLUTIDE [Suspect]
     Active Substance: TEDUGLUTIDE
     Indication: Short-bowel syndrome
     Dosage: 0.8 MILLIGRAM, QD
     Route: 042
     Dates: start: 20171001, end: 20200825
  4. TEDUGLUTIDE [Suspect]
     Active Substance: TEDUGLUTIDE
     Indication: Short-bowel syndrome
     Dosage: 0.8 MILLIGRAM, QD
     Route: 042
     Dates: start: 20171001, end: 20200825
  5. TEDUGLUTIDE [Suspect]
     Active Substance: TEDUGLUTIDE
     Dosage: 0.9 MILLIGRAM, QD
     Route: 042
     Dates: start: 20200826, end: 20210317
  6. TEDUGLUTIDE [Suspect]
     Active Substance: TEDUGLUTIDE
     Dosage: 0.9 MILLIGRAM, QD
     Route: 042
     Dates: start: 20200826, end: 20210317
  7. TEDUGLUTIDE [Suspect]
     Active Substance: TEDUGLUTIDE
     Dosage: 0.9 MILLIGRAM, QD
     Route: 042
     Dates: start: 20200826, end: 20210317
  8. TEDUGLUTIDE [Suspect]
     Active Substance: TEDUGLUTIDE
     Dosage: 0.9 MILLIGRAM, QD
     Route: 042
     Dates: start: 20200826, end: 20210317
  9. TEDUGLUTIDE [Suspect]
     Active Substance: TEDUGLUTIDE
     Dosage: 0.9 MILLIGRAM, QD
     Route: 042
     Dates: start: 20210528
  10. TEDUGLUTIDE [Suspect]
     Active Substance: TEDUGLUTIDE
     Dosage: 0.9 MILLIGRAM, QD
     Route: 042
     Dates: start: 20210528
  11. TEDUGLUTIDE [Suspect]
     Active Substance: TEDUGLUTIDE
     Dosage: 0.9 MILLIGRAM, QD
     Route: 042
     Dates: start: 20210528
  12. TEDUGLUTIDE [Suspect]
     Active Substance: TEDUGLUTIDE
     Dosage: 0.9 MILLIGRAM, QD
     Route: 042
     Dates: start: 20210528
  13. ENOXAPARIN SODIUM [Concomitant]
     Active Substance: ENOXAPARIN SODIUM
     Indication: Prophylaxis
     Dosage: 80 MILLIGRAM, QD
     Route: 042
     Dates: start: 20211215
  14. FUROSEMIDE [Concomitant]
     Active Substance: FUROSEMIDE
     Indication: Dehydration
     Dosage: 68.60 MILLIGRAM, QD
     Route: 042
     Dates: start: 20211215
  15. FUROSEMIDE [Concomitant]
     Active Substance: FUROSEMIDE
     Dosage: 10 MILLIGRAM, BID
     Route: 042
     Dates: start: 20190323, end: 20190801
  16. ERGOCALCIFEROL\PHYTONADIONE\RETINOL\TOCOPHEROL [Concomitant]
     Active Substance: ERGOCALCIFEROL\PHYTONADIONE\RETINOL\TOCOPHEROL
     Indication: Hypovitaminosis
     Dosage: 6 MILLILITER, QD
     Route: 042
     Dates: start: 20211215
  17. VITAMINS [Concomitant]
     Active Substance: VITAMINS
     Indication: Hypovitaminosis
     Dosage: 6 MILLILITER, QD
     Route: 042
     Dates: start: 20211215
  18. LEVOCARNITIN [Concomitant]
     Indication: Carnitine deficiency
     Dosage: 50 MILLIGRAM
     Route: 042
     Dates: start: 20190323, end: 20190801
  19. LEVOCARNITIN [Concomitant]
     Dosage: 50 MILLIGRAM, 1/WEEK
     Route: 042
     Dates: start: 20190802
  20. CALCITRIOL [Concomitant]
     Active Substance: CALCITRIOL
     Indication: Vitamin D abnormal
     Dosage: 1 DOSAGE FORM, 1/WEEK
     Route: 042
     Dates: start: 20190802
  21. CALCITRIOL [Concomitant]
     Active Substance: CALCITRIOL
     Indication: Vitamin D deficiency
     Dosage: 1 INTERNATIONAL UNIT
     Route: 042
     Dates: start: 20190323, end: 20190801
  22. CALCITRIOL [Concomitant]
     Active Substance: CALCITRIOL
     Indication: Nephropathy
  23. ERYTHROPOIETIN [Concomitant]
     Active Substance: ERYTHROPOIETIN
     Indication: Anaemia
     Dosage: 300 INTERNATIONAL UNIT, 1/WEEK
     Route: 042
     Dates: start: 20190323, end: 20210304
  24. AMPHOTERICIN B [Concomitant]
     Active Substance: AMPHOTERICIN B
     Indication: Antifungal treatment
     Dosage: 1 MILLILITER, QID
     Route: 048
     Dates: start: 20161120, end: 20191123
  25. VITADRAL [Concomitant]
     Indication: Vitamin A deficiency
     Dosage: 6 GTT DROPS, QD
     Route: 048
     Dates: start: 20191006, end: 20200727
  26. VITADRAL [Concomitant]
     Dosage: 4 GTT DROPS, QD
     Route: 048
     Dates: start: 20150522, end: 20191208
  27. ZINC OROTATE [Concomitant]
     Active Substance: ZINC OROTATE
     Indication: Supplementation therapy
     Dosage: 12.5 MILLIGRAM, QD
     Route: 048
     Dates: start: 20190208, end: 20191208
  28. XYLOMETAZOLINE HYDROCHLORIDE [Concomitant]
     Active Substance: XYLOMETAZOLINE HYDROCHLORIDE
     Indication: Nasal congestion
     Dosage: 1 DOSAGE FORM
     Route: 055
     Dates: start: 20161120, end: 20190527
  29. HEPARIN [Concomitant]
     Active Substance: HEPARIN SODIUM
     Indication: Prophylaxis
     Dosage: 35000 INTERNATIONAL UNIT
     Route: 042
     Dates: start: 20190323, end: 20200118
  30. FUROSEMIDE [Concomitant]
     Active Substance: FUROSEMIDE
     Indication: Dehydration
  31. FERRLECIT [Concomitant]
     Active Substance: SODIUM FERRIC GLUCONATE COMPLEX
     Indication: Iron deficiency anaemia
     Dosage: 10 MILLIGRAM, BID
     Route: 042
     Dates: start: 20190323, end: 20190801
  32. FERRLECIT [Concomitant]
     Active Substance: SODIUM FERRIC GLUCONATE COMPLEX
     Indication: Iron deficiency
     Dosage: 10 MILLIGRAM, BID
     Route: 042
     Dates: start: 20190802, end: 20200521
  33. FERRLECIT [Concomitant]
     Active Substance: SODIUM FERRIC GLUCONATE COMPLEX
     Dosage: 37.5 MILLIGRAM, 1/WEEK
     Route: 042
     Dates: start: 20210723
  34. AMPHOTERICIN B [Concomitant]
     Active Substance: AMPHOTERICIN B
     Indication: Pyrexia
     Dosage: UNK
     Route: 042
     Dates: start: 20210615, end: 20210616
  35. FLUCYTOSINE [Concomitant]
     Active Substance: FLUCYTOSINE
     Indication: Candida infection
     Dosage: UNK
     Route: 042
     Dates: start: 20210615, end: 20210617
  36. GRANULOCYTE COLONY-STIMULATING FACTOR NOS [Concomitant]
     Active Substance: GRANULOCYTE COLONY-STIMULATING FACTOR NOS
     Indication: Neutropenia
     Dosage: 5 DOSAGE FORM, QD
     Route: 042
     Dates: start: 20210616
  37. NEFROCARNIT [Concomitant]
     Indication: Carnitine deficiency
     Dosage: 50 MILLIGRAM, 1/WEEK
     Route: 042
     Dates: start: 20210723
  38. COTRIM [Concomitant]
     Active Substance: SULFAMETHOXAZOLE\TRIMETHOPRIM
     Indication: Prophylaxis
     Dosage: 720 MILLIGRAM, 1/WEEK
     Route: 042
     Dates: start: 20210723
  39. ERYTHROPOIETIN [Concomitant]
     Active Substance: ERYTHROPOIETIN
     Indication: Anaemia
     Dosage: 500 DOSAGE FORM, 1/WEEK
     Route: 058
     Dates: start: 20210828
  40. Kalinor [Concomitant]
     Indication: Hypokalaemia
     Dosage: 1 DOSAGE FORM, QD
     Route: 048
     Dates: start: 20210919
  41. PANTOPRAZOLE [Concomitant]
     Active Substance: PANTOPRAZOLE
     Indication: Gastric ulcer
     Dosage: 10 MILLIGRAM
     Route: 065
     Dates: start: 20210919
  42. PANCRELIPASE [Concomitant]
     Active Substance: PANCRELIPASE
     Indication: Dyspepsia
     Dosage: 5000 UNK, TID
     Route: 048
     Dates: start: 20210919

REACTIONS (2)
  - Thrombocytopenia [Recovered/Resolved]
  - Sepsis [Recovered/Resolved]

NARRATIVE: CASE EVENT DATE: 20201207
